FAERS Safety Report 11624515 (Version 42)
Quarter: 2020Q3

REPORT INFORMATION
  Report Type: Report from Study
  Country: CA (occurrence: CA)
  Receive Date: 20151013
  Receipt Date: 20200910
  Transmission Date: 20201102
  Serious: Yes (Hospitalization, Other)
  Sender: FDA-Public Use
  Company Number: PHHY2015CA123121

PATIENT
  Age: 61 Year
  Sex: Male

DRUGS (8)
  1. SANDOSTATIN LAR DEPOT [Suspect]
     Active Substance: OCTREOTIDE ACETATE
     Dosage: UNK
     Route: 030
     Dates: start: 20190328
  2. SANDOSTATIN LAR DEPOT [Suspect]
     Active Substance: OCTREOTIDE ACETATE
     Dosage: 40 MG, QMO (EVERY 4 WEEKS)
     Route: 030
     Dates: start: 20160722
  3. BI?K [Concomitant]
     Dosage: 40 MG, UNK
     Route: 065
  4. BI?K [Concomitant]
     Indication: BLOOD POTASSIUM DECREASED
     Dosage: 20 MMOL, QD (DAILY)
     Route: 065
  5. SANDOSTATIN LAR DEPOT [Suspect]
     Active Substance: OCTREOTIDE ACETATE
     Dosage: 60 MG, QMO (EVERY 4 WEEKS)
     Route: 030
     Dates: start: 20150727, end: 20200903
  6. SANDOSTATIN LAR DEPOT [Suspect]
     Active Substance: OCTREOTIDE ACETATE
     Indication: CARCINOID TUMOUR
     Dosage: 30 MG, QMO (ONCE A MONTH)
     Route: 030
     Dates: start: 20150727
  7. BI?K [Concomitant]
     Dosage: 30 MG, UNK
     Route: 065
  8. COVERSYL [Concomitant]
     Active Substance: PERINDOPRIL
     Indication: PRODUCT USED FOR UNKNOWN INDICATION
     Dosage: 2 MG, QD
     Route: 065

REACTIONS (42)
  - Blindness [Unknown]
  - Contusion [Unknown]
  - Gynaecomastia [Not Recovered/Not Resolved]
  - Dysuria [Unknown]
  - Fall [Unknown]
  - Weight increased [Unknown]
  - Post procedural complication [Unknown]
  - Urinary tract infection [Unknown]
  - Blood pressure increased [Unknown]
  - Hot flush [Not Recovered/Not Resolved]
  - Blood potassium decreased [Unknown]
  - Photopsia [Unknown]
  - Cough [Unknown]
  - Heart rate increased [Unknown]
  - Stress [Unknown]
  - Intestinal obstruction [Unknown]
  - Retinal detachment [Unknown]
  - Metastases to liver [Unknown]
  - Drug ineffective [Unknown]
  - Abdominal adhesions [Unknown]
  - Abdominal pain [Unknown]
  - Pyrexia [Unknown]
  - Arthralgia [Unknown]
  - Chills [Unknown]
  - Corneal oedema [Unknown]
  - Body temperature decreased [Unknown]
  - Metastases to kidney [Unknown]
  - Neoplasm progression [Unknown]
  - Nasopharyngitis [Unknown]
  - Postoperative abscess [Unknown]
  - Abdominal distension [Unknown]
  - Corneal dystrophy [Unknown]
  - Pain [Unknown]
  - Blood pressure systolic increased [Unknown]
  - Wound dehiscence [Recovered/Resolved]
  - Rotator cuff syndrome [Unknown]
  - Prostatic disorder [Unknown]
  - Visual impairment [Unknown]
  - Blood chromogranin A increased [Unknown]
  - Nasal congestion [Unknown]
  - Fatigue [Unknown]
  - Injection site pain [Recovered/Resolved]

NARRATIVE: CASE EVENT DATE: 20150929
